FAERS Safety Report 18381172 (Version 1)
Quarter: 2020Q4

REPORT INFORMATION
  Report Type: Spontaneous
  Country: US (occurrence: US)
  Receive Date: 20201014
  Receipt Date: 20201014
  Transmission Date: 20210114
  Serious: Yes (Other)
  Sender: FDA-Public Use
  Company Number: US-CADILA HEALTHCARE LIMITED-US-ZYDUS-056637

PATIENT

DRUGS (1)
  1. FINASTERIDE. [Suspect]
     Active Substance: FINASTERIDE
     Indication: ANDROGENETIC ALOPECIA
     Dosage: UNK
     Route: 065

REACTIONS (9)
  - Flushing [Unknown]
  - Xeroderma [Unknown]
  - Hypothermia [Unknown]
  - Premature ageing [Unknown]
  - Swelling face [Unknown]
  - Muscle spasms [Unknown]
  - Tremor [Unknown]
  - Xerophthalmia [Unknown]
  - Palpitations [Unknown]
